FAERS Safety Report 9645229 (Version 2)
Quarter: 2013Q4

REPORT INFORMATION
  Report Type: Spontaneous
  Country: BR (occurrence: BR)
  Receive Date: 20131025
  Receipt Date: 20131025
  Transmission Date: 20140711
  Serious: Yes (Other)
  Sender: FDA-Public Use
  Company Number: BR-BAYER-2013-084324

PATIENT
  Sex: Female

DRUGS (1)
  1. REGORAFENIB [Suspect]
     Indication: COLORECTAL CANCER METASTATIC
     Route: 048

REACTIONS (3)
  - Central nervous system haemorrhage [None]
  - Deep vein thrombosis [None]
  - Asthenia [None]
